FAERS Safety Report 6642093-7 (Version None)
Quarter: 2010Q1

REPORT INFORMATION
  Report Type: 
  Country: None (occurrence: None)
  Receive Date: 20100319
  Receipt Date: 20100311
  Transmission Date: 20100710
  Serious: Yes (Death, Other)
  Sender: FDA-Public Use
  Company Number: NL-BAYER-201013187GPV

PATIENT
  Age: 62 Year
  Sex: Male

DRUGS (10)
  1. ALEMTUZUMAB [Suspect]
     Indication: T-CELL LYMPHOMA
     Dosage: TOTAL DAILY DOSE: 30 MG
     Route: 058
     Dates: start: 20091106, end: 20091230
  2. ALEMTUZUMAB [Suspect]
     Dosage: DOSE ESCALATION VIA 10 / 20 / 30 MG PER DAY ON 3 CONSECUTIVE DAYS IN CYCLE 1
     Route: 058
     Dates: start: 20091105
  3. PREDNISONE [Suspect]
     Indication: T-CELL LYMPHOMA
     Dosage: TOTAL DAILY DOSE: 100 MG
     Route: 048
     Dates: start: 20091105, end: 20091230
  4. CYCLOPHOSPHAMIDE [Suspect]
     Indication: T-CELL LYMPHOMA
     Dosage: TOTAL DAILY DOSE: 1415 MG
     Route: 042
     Dates: start: 20091105, end: 20091230
  5. DOXORUBICIN HCL [Suspect]
     Indication: T-CELL LYMPHOMA
     Dosage: TOTAL DAILY DOSE: 95 MG
     Route: 042
     Dates: start: 20091105, end: 20091230
  6. VINCRISTINE [Suspect]
     Indication: T-CELL LYMPHOMA
     Dosage: TOTAL DAILY DOSE: 2 MG
     Route: 042
     Dates: start: 20091105, end: 20091230
  7. PEGFILGRASTIM [Suspect]
     Indication: T-CELL LYMPHOMA
     Dosage: TOTAL DAILY DOSE: 6 MG
     Route: 058
     Dates: start: 20091108, end: 20091230
  8. TRIMETHOPRIM/SULFAMETHOXAZOL [Concomitant]
     Indication: INFECTION PROPHYLAXIS
     Route: 048
     Dates: start: 20091101, end: 20100118
  9. VALACICLOVIR [Concomitant]
     Indication: INFECTION PROPHYLAXIS
     Dosage: TOTAL DAILY DOSE: 1500 MG
     Route: 048
     Dates: start: 20091101, end: 20100118
  10. FLUCONAZOLE [Concomitant]
     Indication: INFECTION PROPHYLAXIS
     Route: 048
     Dates: start: 20091101, end: 20100118

REACTIONS (6)
  - DIARRHOEA [None]
  - HEPATIC FAILURE [None]
  - PYREXIA [None]
  - RENAL FAILURE [None]
  - VIRAEMIA [None]
  - VIRAL TEST POSITIVE [None]
